FAERS Safety Report 14096377 (Version 2)
Quarter: 2017Q4

REPORT INFORMATION
  Report Type: Spontaneous
  Country: US (occurrence: US)
  Receive Date: 20171017
  Receipt Date: 20171106
  Transmission Date: 20180321
  Serious: Yes (Other)
  Sender: FDA-Public Use
  Company Number: US-AMGEN-USASP2017155051

PATIENT
  Sex: Female

DRUGS (14)
  1. VITAMIN D [Concomitant]
     Active Substance: CHOLECALCIFEROL
     Dosage: 3000 IU, QD
  2. CYCLOPHOSPHAMIDE. [Concomitant]
     Active Substance: CYCLOPHOSPHAMIDE
     Indication: B-CELL LYMPHOMA
     Dosage: UNK UNK, CYCLICAL/ 3 CYCLES
     Dates: start: 2010, end: 2010
  3. DOXORUBICIN [Concomitant]
     Active Substance: DOXORUBICIN
     Indication: B-CELL LYMPHOMA
     Dosage: UNK UNK, CYCLICAL/ 3 CYCLES
     Dates: start: 2010, end: 2010
  4. PREDNISONE. [Concomitant]
     Active Substance: PREDNISONE
     Indication: ARTHRALGIA
     Dosage: UNK, CYCLICAL/ 3 CYCLES
     Dates: start: 2010
  5. RANITIDINE. [Concomitant]
     Active Substance: RANITIDINE
     Indication: CLOSTRIDIUM DIFFICILE INFECTION
  6. RANITIDINE. [Concomitant]
     Active Substance: RANITIDINE
     Indication: GASTRIC DISORDER
     Dosage: UNK UNK, QD (2 PILLS DAILY)
  7. TUMS [Concomitant]
     Active Substance: CALCIUM CARBONATE
     Indication: GASTRIC DISORDER
     Dosage: 1200 MG, QD
  8. PREDNISOLONE. [Concomitant]
     Active Substance: PREDNISOLONE
     Indication: B-CELL LYMPHOMA
     Dosage: UNK UNK, CYCLICAL/ 3 CYCLE
     Dates: start: 2010, end: 2010
  9. FOSAMAX [Concomitant]
     Active Substance: ALENDRONATE SODIUM
     Dosage: UNK
  10. CALCIUM [Concomitant]
     Active Substance: CALCIUM
     Dosage: 1200 MG, UNK
  11. VINCRISTINE [Concomitant]
     Active Substance: VINCRISTINE
     Indication: B-CELL LYMPHOMA
     Dosage: UNK UNK, CYCLICAL/ 3 CYCLE
     Dates: start: 2010, end: 2010
  12. NEULASTA [Suspect]
     Active Substance: PEGFILGRASTIM
     Indication: PROPHYLAXIS
     Dosage: UNK UNK, ONE TIME DOSE (0.5 CC VIAL, 24 HOURS LATER CHEMO)
     Route: 065
     Dates: start: 2010, end: 2010
  13. METHOTREXATE. [Concomitant]
     Active Substance: METHOTREXATE
     Dosage: UNK
  14. RITUXIMAB. [Concomitant]
     Active Substance: RITUXIMAB
     Indication: B-CELL LYMPHOMA
     Dosage: UNK UNK, CYCLICAL/ 3 CYCLES
     Dates: start: 2010, end: 2010

REACTIONS (31)
  - Tooth abscess [Unknown]
  - Diarrhoea [Unknown]
  - Jaw disorder [Unknown]
  - Pharyngeal oedema [Unknown]
  - Inflammation [Unknown]
  - Rash [Recovered/Resolved]
  - Clostridium difficile infection [Recovered/Resolved]
  - Tooth disorder [Unknown]
  - Weight decreased [Unknown]
  - Nasopharyngitis [Not Recovered/Not Resolved]
  - Pain in jaw [Unknown]
  - Sinus congestion [Unknown]
  - Blister [Unknown]
  - Erythema [Unknown]
  - Oral candidiasis [Unknown]
  - Mouth swelling [Unknown]
  - Rubber sensitivity [Unknown]
  - Gastric ulcer [Unknown]
  - Post procedural inflammation [Unknown]
  - Tooth infection [Unknown]
  - Oral pain [Unknown]
  - Paraesthesia [Unknown]
  - Dysaesthesia [Unknown]
  - Swollen tongue [Unknown]
  - Cough [Recovering/Resolving]
  - Skin lesion [Recovered/Resolved]
  - Mobility decreased [Unknown]
  - Back injury [Unknown]
  - Arthralgia [Recovered/Resolved]
  - Urticaria [Unknown]
  - Gastritis [Unknown]

NARRATIVE: CASE EVENT DATE: 2010
